FAERS Safety Report 14095951 (Version 1)
Quarter: 2017Q4

REPORT INFORMATION
  Report Type: Spontaneous
  Country: US (occurrence: US)
  Receive Date: 20171016
  Receipt Date: 20171016
  Transmission Date: 20180321
  Serious: Yes (Other)
  Sender: FDA-Public Use
  Company Number: US-CORDEN PHARMA LATINA S.P.A.-US-2017COR000210

PATIENT
  Age: 34 Year
  Sex: Male

DRUGS (2)
  1. CISPLATIN. [Suspect]
     Active Substance: CISPLATIN
     Indication: TESTICULAR SEMINOMA (PURE) STAGE III
     Dosage: 20 MG/M2, INITIALLY FOR 5 DAYS
     Route: 042
  2. ETOPOSIDE. [Suspect]
     Active Substance: ETOPOSIDE
     Indication: TESTICULAR SEMINOMA (PURE) STAGE III
     Dosage: 100 MG/M2, DAILY AND RECEIVED AN INITIAL 5 DAYS OF THERAPY
     Route: 042

REACTIONS (3)
  - Dysphagia [Unknown]
  - Odynophagia [Unknown]
  - Oesophageal stenosis [Unknown]
